FAERS Safety Report 5727201-4 (Version None)
Quarter: 2008Q2

REPORT INFORMATION
  Report Type: 
  Country: None (occurrence: None)
  Receive Date: 20080430
  Receipt Date: 20071029
  Transmission Date: 20081010
  Serious: Yes (Death)
  Sender: FDA-Public Use
  Company Number: 57194/112

PATIENT
  Sex: Female

DRUGS (1)
  1. TERBINAFINE (TERBINAFINE) TABLET [Suspect]
     Indication: ONYCHOMYCOSIS
     Dosage: ORAL
     Route: 048

REACTIONS (4)
  - ARTHRITIS [None]
  - LEUKOPENIA [None]
  - MYOCARDIAL INFARCTION [None]
  - SYSTEMIC LUPUS ERYTHEMATOSUS [None]
